FAERS Safety Report 15148169 (Version 4)
Quarter: 2018Q4

REPORT INFORMATION
  Report Type: Spontaneous
  Country: US (occurrence: US)
  Receive Date: 20180716
  Receipt Date: 20181003
  Transmission Date: 20190204
  Serious: No
  Sender: FDA-Public Use
  Company Number: US-PFIZER INC-2018284215

PATIENT
  Age: 15 Year
  Sex: Male

DRUGS (1)
  1. EUCRISA [Suspect]
     Active Substance: CRISABOROLE
     Dosage: UNK, 2X/DAY (APPLY A THIN LAYER TWICE A DAY TO AFFECTED AREAS)

REACTIONS (6)
  - Drug hypersensitivity [Unknown]
  - Application site vesicles [Unknown]
  - Skin haemorrhage [Unknown]
  - Skin fissures [Unknown]
  - Scab [Unknown]
  - Application site pain [Unknown]
